FAERS Safety Report 5854012-1 (Version None)
Quarter: 2008Q3

REPORT INFORMATION
  Report Type: 
  Country: None (occurrence: None)
  Receive Date: 20080822
  Receipt Date: 20080811
  Transmission Date: 20090109
  Serious: Yes (Hospitalization, Other)
  Sender: FDA-Public Use
  Company Number: BR-ROCHE-579784

PATIENT
  Sex: Female
  Weight: 57 kg

DRUGS (5)
  1. VESANOID [Suspect]
     Indication: ACUTE MYELOID LEUKAEMIA
     Route: 048
     Dates: start: 20080727, end: 20080729
  2. VESANOID [Suspect]
     Route: 048
     Dates: start: 20080802, end: 20080803
  3. FUROSEMIDE [Concomitant]
  4. ALLOPURINOL [Concomitant]
  5. MEROPENEM [Concomitant]

REACTIONS (4)
  - CONDITION AGGRAVATED [None]
  - DISSEMINATED INTRAVASCULAR COAGULATION [None]
  - PULMONARY HAEMORRHAGE [None]
  - RESPIRATORY FAILURE [None]
